FAERS Safety Report 7642233-7 (Version None)
Quarter: 2011Q3

REPORT INFORMATION
  Report Type: 
  Country: None (occurrence: None)
  Receive Date: 20110728
  Receipt Date: 20110713
  Transmission Date: 20111222
  Serious: Yes (Other)
  Sender: FDA-Public Use
  Company Number: PHHY2011US64211

PATIENT
  Sex: Male

DRUGS (1)
  1. GLEEVEC [Suspect]
     Indication: CHRONIC MYELOID LEUKAEMIA
     Dosage: 400 MG, DAILY
     Route: 048
     Dates: start: 20100118

REACTIONS (7)
  - EYE INFECTION [None]
  - BLADDER NEOPLASM [None]
  - GOUT [None]
  - IRRITABILITY [None]
  - DENTAL CARIES [None]
  - MIGRAINE [None]
  - MUSCLE SPASMS [None]
